FAERS Safety Report 8625139-6 (Version None)
Quarter: 2012Q3

REPORT INFORMATION
  Report Type: 
  Country: None (occurrence: None)
  Receive Date: 20120827
  Receipt Date: 20120814
  Transmission Date: 20120928
  Serious: Yes (Hospitalization)
  Sender: FDA-Public Use
  Company Number: US-NOVEN-12US005137

PATIENT
  Age: 55 Year
  Sex: Female

DRUGS (4)
  1. HYDROCODONE BITARTRATE + ACETAMINOPHEN [Concomitant]
     Indication: BREAKTHROUGH PAIN
     Dosage: 10/325 MG
  2. DULOXETINE HYDROCHLORIDE [Concomitant]
     Indication: PRODUCT USED FOR UNKNOWN INDICATION
     Dosage: 20 MG, QD
  3. FENTANYL [Suspect]
     Indication: CANCER PAIN
     Dosage: 50 MCG/HR
     Route: 062
  4. FENTANYL [Suspect]
     Dosage: 75 UG/HR
     Route: 062

REACTIONS (7)
  - HYPERCALCAEMIA [None]
  - DELIRIUM [None]
  - INADEQUATE ANALGESIA [None]
  - CONFUSIONAL STATE [None]
  - MENTAL STATUS CHANGES [None]
  - FALL [None]
  - SLUGGISHNESS [None]
